FAERS Safety Report 19707391 (Version 1)
Quarter: 2021Q3

REPORT INFORMATION
  Report Type: Spontaneous
  Country: US (occurrence: US)
  Receive Date: 20210817
  Receipt Date: 20210817
  Transmission Date: 20211014
  Serious: No
  Sender: FDA-Public Use
  Company Number: US-BEH-2021134882

PATIENT
  Age: 43 Year
  Sex: Female

DRUGS (2)
  1. PREMARIN [Concomitant]
     Active Substance: ESTROGENS, CONJUGATED
  2. HIZENTRA [Suspect]
     Active Substance: HUMAN IMMUNOGLOBULIN G
     Indication: IMMUNODEFICIENCY COMMON VARIABLE
     Dosage: 8 GRAM, QW
     Route: 058
     Dates: start: 20210406

REACTIONS (2)
  - Nausea [Not Recovered/Not Resolved]
  - Pain [Not Recovered/Not Resolved]

NARRATIVE: CASE EVENT DATE: 20210810
